FAERS Safety Report 4748743-4 (Version None)
Quarter: 2005Q3

REPORT INFORMATION
  Report Type: 
  Country: None (occurrence: None)
  Receive Date: 20050818
  Receipt Date: 20050815
  Transmission Date: 20060218
  Serious: Yes (Death)
  Sender: FDA-Public Use
  Company Number: 05-07-1232

PATIENT
  Age: 38 Year
  Sex: Male

DRUGS (3)
  1. CLOZAPINE [Suspect]
     Indication: PARANOIA
     Dosage: 800MG QD, ORAL
     Route: 048
     Dates: start: 20000101, end: 20050713
  2. CLOZAPINE [Suspect]
     Indication: SCHIZOPHRENIA
     Dosage: 800MG QD, ORAL
     Route: 048
     Dates: start: 20000101, end: 20050713
  3. ZOLOFT [Concomitant]

REACTIONS (2)
  - INFECTION [None]
  - MYOCARDIAL INFARCTION [None]
